FAERS Safety Report 11463204 (Version 1)
Quarter: 2015Q3

REPORT INFORMATION
  Report Type: Report from Study
  Country: IE (occurrence: IE)
  Receive Date: 20150905
  Receipt Date: 20150905
  Transmission Date: 20151125
  Serious: Yes (Death, Other)
  Sender: FDA-Public Use
  Company Number: IE-AMGEN-IRLSL2015090524

PATIENT
  Age: 73 Year
  Sex: Male

DRUGS (10)
  1. LIORESAL [Concomitant]
     Active Substance: BACLOFEN
  2. SIMVASTATIN. [Concomitant]
     Active Substance: SIMVASTATIN
  3. ASPIRIN                            /00002701/ [Concomitant]
     Active Substance: ASPIRIN
  4. ARANESP [Suspect]
     Active Substance: DARBEPOETIN ALFA
     Indication: CHRONIC KIDNEY DISEASE
     Dosage: 30 MUG, UNK
     Route: 058
     Dates: start: 20150225
  5. PREDNISOLONE. [Concomitant]
     Active Substance: PREDNISOLONE
  6. ALLOPURINOL. [Concomitant]
     Active Substance: ALLOPURINOL
  7. RAMIPRIL. [Concomitant]
     Active Substance: RAMIPRIL
  8. FUROSEMIDE. [Concomitant]
     Active Substance: FUROSEMIDE
  9. PROTIUM                            /01263204/ [Concomitant]
  10. ATENOLOL. [Concomitant]
     Active Substance: ATENOLOL

REACTIONS (1)
  - Death [Fatal]

NARRATIVE: CASE EVENT DATE: 20150814
